FAERS Safety Report 25602174 (Version 1)
Quarter: 2025Q3

REPORT INFORMATION
  Report Type: Spontaneous
  Country: JP (occurrence: JP)
  Receive Date: 20250724
  Receipt Date: 20250724
  Transmission Date: 20251021
  Serious: Yes (Other)
  Sender: DAIICHI
  Company Number: JP-DSJP-DSJ-2023-149227

PATIENT
  Age: 67 Year
  Sex: Male

DRUGS (5)
  1. ENHERTU [Suspect]
     Active Substance: FAM-TRASTUZUMAB DERUXTECAN-NXKI
     Indication: HER2 mutant non-small cell lung cancer
     Dosage: 5.4 MG/KG, ONCE EVERY 3 WK
     Route: 041
     Dates: start: 202309
  2. ENHERTU [Suspect]
     Active Substance: FAM-TRASTUZUMAB DERUXTECAN-NXKI
     Dosage: 5.4 MG/KG, ONCE EVERY 4 WK
     Route: 041
  3. ENHERTU [Suspect]
     Active Substance: FAM-TRASTUZUMAB DERUXTECAN-NXKI
     Dosage: 4.4 MG/KG, ONCE EVERY 4 WK
     Route: 041
  4. PALONOSETRON [Concomitant]
     Active Substance: PALONOSETRON
     Indication: Antiemetic supportive care
     Route: 065
     Dates: start: 202309
  5. DEXAMETHASONE [Concomitant]
     Active Substance: DEXAMETHASONE
     Indication: Antiemetic supportive care
     Route: 065
     Dates: start: 202309

REACTIONS (5)
  - Disease progression [Unknown]
  - White blood cell count decreased [Recovering/Resolving]
  - Neutrophil count decreased [Unknown]
  - Nausea [Unknown]
  - Decreased appetite [Unknown]

NARRATIVE: CASE EVENT DATE: 20230101
